FAERS Safety Report 14667186 (Version 1)
Quarter: 2018Q1

REPORT INFORMATION
  Report Type: Spontaneous
  Country: RU (occurrence: RU)
  Receive Date: 20180322
  Receipt Date: 20180322
  Transmission Date: 20180509
  Serious: Yes (Other)
  Sender: FDA-Public Use
  Company Number: RU-ASTRAZENECA-2018SE16626

PATIENT
  Age: 76 Year
  Sex: Female
  Weight: 82 kg

DRUGS (4)
  1. GALVUS [Concomitant]
     Active Substance: VILDAGLIPTIN
  2. FORXIGA [Suspect]
     Active Substance: DAPAGLIFLOZIN
     Indication: TYPE 2 DIABETES MELLITUS
     Route: 048
     Dates: start: 20171016
  3. METFORMIN [Concomitant]
     Active Substance: METFORMIN HYDROCHLORIDE
  4. MANINIL [Concomitant]
     Active Substance: GLYBURIDE

REACTIONS (4)
  - Blood glucose increased [Unknown]
  - Femoral neck fracture [Not Recovered/Not Resolved]
  - Off label use [Unknown]
  - Product use issue [Unknown]

NARRATIVE: CASE EVENT DATE: 20171226
